FAERS Safety Report 12611046 (Version 2)
Quarter: 2016Q4

REPORT INFORMATION
  Report Type: Report from Study
  Country: AU (occurrence: AU)
  Receive Date: 20160801
  Receipt Date: 20161128
  Transmission Date: 20170207
  Serious: Yes (Hospitalization, Other)
  Sender: FDA-Public Use
  Company Number: PHHY2016AU104018

PATIENT
  Age: 52 Year
  Sex: Female
  Weight: 70 kg

DRUGS (5)
  1. LDK378 [Suspect]
     Active Substance: CERITINIB
     Dosage: 150 MG, QID
     Route: 048
     Dates: start: 20160623, end: 20160721
  2. DEXAMETHASONE. [Concomitant]
     Active Substance: DEXAMETHASONE
     Indication: FATIGUE
     Dosage: 2 MG, UNK
     Route: 065
  3. DEXAMETHASONE. [Concomitant]
     Active Substance: DEXAMETHASONE
     Indication: DECREASED APPETITE
  4. CARBIMAZOLE [Concomitant]
     Active Substance: CARBIMAZOLE
     Indication: HYPERTHYROIDISM
     Dosage: 5 MG, BID
     Route: 065
  5. LDK378 [Suspect]
     Active Substance: CERITINIB
     Indication: LUNG ADENOCARCINOMA METASTATIC
     Dosage: 150 MG, 5QD
     Route: 048
     Dates: start: 20160331

REACTIONS (25)
  - Chest pain [Not Recovered/Not Resolved]
  - Dyspnoea [Not Recovered/Not Resolved]
  - Pneumonia [Unknown]
  - Pulmonary embolism [Unknown]
  - Pulmonary oedema [Unknown]
  - Liver function test increased [Unknown]
  - Oxygen saturation decreased [Unknown]
  - Hilar lymphadenopathy [Unknown]
  - Pleural effusion [Unknown]
  - Tachycardia [Unknown]
  - Metastases to liver [Unknown]
  - Lymphadenopathy mediastinal [Unknown]
  - Goitre [Unknown]
  - Metastatic neoplasm [Unknown]
  - Disseminated intravascular coagulation [Unknown]
  - Platelet disorder [Unknown]
  - Metastases to bone [Not Recovered/Not Resolved]
  - Cardiomegaly [Unknown]
  - Hepatic function abnormal [Unknown]
  - Contusion [Not Recovered/Not Resolved]
  - Thrombocytopenia [Not Recovered/Not Resolved]
  - Lung consolidation [Unknown]
  - Hypofibrinogenaemia [Unknown]
  - Lung adenocarcinoma [Unknown]
  - Chest X-ray abnormal [Unknown]

NARRATIVE: CASE EVENT DATE: 20160721
